FAERS Safety Report 5942550-2 (Version None)
Quarter: 2008Q4

REPORT INFORMATION
  Report Type: 
  Country: None (occurrence: None)
  Receive Date: 20081105
  Receipt Date: 20081024
  Transmission Date: 20090506
  Serious: Yes (Other)
  Sender: FDA-Public Use
  Company Number: AR-PFIZER INC-2008091508

PATIENT
  Age: 76 Year
  Sex: Male

DRUGS (1)
  1. SUTENT [Suspect]
     Indication: RENAL CELL CARCINOMA

REACTIONS (3)
  - ASTHENIA [None]
  - HYPERTHYROIDISM [None]
  - THYROIDITIS [None]
